FAERS Safety Report 7670134-7 (Version None)
Quarter: 2011Q3

REPORT INFORMATION
  Report Type: 
  Country: None (occurrence: None)
  Receive Date: 20110808
  Receipt Date: 20110729
  Transmission Date: 20111222
  Serious: Yes (Other)
  Sender: FDA-Public Use
  Company Number: US-ASTRAZENECA-2011SE45716

PATIENT
  Sex: Female

DRUGS (2)
  1. CRESTOR [Suspect]
     Route: 048
  2. INSULIN [Concomitant]
     Dosage: 2

REACTIONS (2)
  - TRANSIENT ISCHAEMIC ATTACK [None]
  - DIABETES MELLITUS [None]
